FAERS Safety Report 21547938 (Version 1)
Quarter: 2022Q4

REPORT INFORMATION
  Report Type: Spontaneous
  Country: IT (occurrence: IT)
  Receive Date: 20221103
  Receipt Date: 20221103
  Transmission Date: 20230112
  Serious: Yes (Congenital Anomaly)
  Sender: FDA-Public Use
  Company Number: IT-009507513-2211ITA000418

PATIENT
  Sex: Male
  Weight: 3.67 kg

DRUGS (2)
  1. INTERFERON ALFA-2B [Suspect]
     Active Substance: INTERFERON ALFA-2B
     Dosage: 6 MU PER DAY
     Route: 064
     Dates: start: 201806, end: 201907
  2. PONATINIB [Suspect]
     Active Substance: PONATINIB
     Dosage: UNK
     Route: 064

REACTIONS (2)
  - Autosomal chromosome anomaly [Unknown]
  - Foetal exposure during pregnancy [Recovered/Resolved]
